FAERS Safety Report 11898062 (Version 5)
Quarter: 2016Q1

REPORT INFORMATION
  Report Type: Report from Study
  Country: GB (occurrence: GB)
  Receive Date: 20160108
  Receipt Date: 20160328
  Transmission Date: 20160526
  Serious: Yes (Hospitalization, Other)
  Sender: FDA-Public Use
  Company Number: GB-ROCHE-1691075

PATIENT
  Sex: Female

DRUGS (10)
  1. ESBRIET [Suspect]
     Active Substance: PIRFENIDONE
     Route: 048
  2. ESBRIET [Suspect]
     Active Substance: PIRFENIDONE
     Route: 048
     Dates: start: 20160104
  3. CLOPIDOGREL [Concomitant]
     Active Substance: CLOPIDOGREL BISULFATE
  4. RAMIPRIL. [Concomitant]
     Active Substance: RAMIPRIL
  5. TILDIEM RETARD [Concomitant]
     Active Substance: DILTIAZEM HYDROCHLORIDE
  6. ESBRIET [Suspect]
     Active Substance: PIRFENIDONE
     Route: 048
  7. LANSOPRAZOLE. [Concomitant]
     Active Substance: LANSOPRAZOLE
  8. ATORVASTATIN [Concomitant]
     Active Substance: ATORVASTATIN
  9. ESBRIET [Suspect]
     Active Substance: PIRFENIDONE
     Indication: IDIOPATHIC PULMONARY FIBROSIS
     Route: 048
     Dates: start: 20160104
  10. OXYGEN. [Concomitant]
     Active Substance: OXYGEN
     Dosage: 3L/MIN LTOT
     Route: 065

REACTIONS (9)
  - Diarrhoea [Unknown]
  - Lower respiratory tract infection [Not Recovered/Not Resolved]
  - Urinary tract infection [Unknown]
  - Terminal state [Not Recovered/Not Resolved]
  - Chest discomfort [Unknown]
  - Fatigue [Unknown]
  - Dyspnoea [Unknown]
  - Abdominal pain upper [Recovered/Resolved]
  - Pain [Unknown]
